FAERS Safety Report 15749926 (Version 1)
Quarter: 2018Q4

REPORT INFORMATION
  Report Type: Spontaneous
  Country: US (occurrence: US)
  Receive Date: 20181205
  Receipt Date: 20181205
  Transmission Date: 20190205
  Serious: Yes (Other)
  Sender: FDA-Public Use
  Company Number: None

PATIENT
  Age: 70 Year
  Sex: Female
  Weight: 93.6 kg

DRUGS (13)
  1. PROZAC [Concomitant]
     Active Substance: FLUOXETINE HYDROCHLORIDE
  2. LASIX [Concomitant]
     Active Substance: FUROSEMIDE
  3. BARIACTRIC FUSIOBN 4 TABLETS QD [Concomitant]
  4. XARELTO [Concomitant]
     Active Substance: RIVAROXABAN
  5. K-DUR [Concomitant]
     Active Substance: POTASSIUM CHLORIDE
  6. CALCIUM [Concomitant]
     Active Substance: CALCIUM
  7. FOLIC ACID. [Concomitant]
     Active Substance: FOLIC ACID
  8. VITAMIN C [Concomitant]
     Active Substance: ASCORBIC ACID
  9. BIOTIN [Concomitant]
     Active Substance: BIOTIN
  10. PRAMIPEXOLE 1.5 MG. TABLET [Suspect]
     Active Substance: PRAMIPEXOLE
     Indication: RESTLESS LEGS SYNDROME
     Dosage: ?          QUANTITY:1 DF DOSAGE FORM;?
     Route: 048
     Dates: start: 20070529, end: 20181120
  11. METROPOL [Concomitant]
  12. OMAPROZOLE [Concomitant]
  13. VITAMIN D [Concomitant]
     Active Substance: CHOLECALCIFEROL

REACTIONS (5)
  - Insomnia [None]
  - Emotional disorder [None]
  - General physical health deterioration [None]
  - Nausea [None]
  - Vomiting [None]

NARRATIVE: CASE EVENT DATE: 20181018
